FAERS Safety Report 19479118 (Version 2)
Quarter: 2021Q3

REPORT INFORMATION
  Report Type: Spontaneous
  Country: HR (occurrence: HR)
  Receive Date: 20210630
  Receipt Date: 20210702
  Transmission Date: 20211014
  Serious: Yes (Other)
  Sender: FDA-Public Use
  Company Number: HR-BAYER-2021-162802

PATIENT

DRUGS (2)
  1. STIVARGA [Suspect]
     Active Substance: REGORAFENIB
     Indication: COLON CANCER METASTATIC
     Dosage: DAILY DOSE 160 MG DURING 21 DAYS PER CYCLE
     Dates: start: 202102
  2. STIVARGA [Suspect]
     Active Substance: REGORAFENIB
     Indication: COLON CANCER METASTATIC
     Dosage: DAILY DOSE 120 MG
     Dates: end: 202105

REACTIONS (5)
  - Metastases to liver [None]
  - Gait disturbance [None]
  - Carcinoembryonic antigen increased [None]
  - Pleural effusion [None]
  - Dysphonia [None]

NARRATIVE: CASE EVENT DATE: 202106
